FAERS Safety Report 25039872 (Version 1)
Quarter: 2025Q1

REPORT INFORMATION
  Report Type: Spontaneous
  Country: US (occurrence: US)
  Receive Date: 20250305
  Receipt Date: 20250305
  Transmission Date: 20250408
  Serious: Yes (Death)
  Sender: RIGEL PHARMACEUTICALS
  Company Number: US-RIGEL Pharmaceuticals INC- 20250300005

PATIENT
  Age: 63 Year
  Sex: Male

DRUGS (1)
  1. GAVRETO [Suspect]
     Active Substance: PRALSETINIB
     Indication: Thyroid cancer
     Dosage: 400 MG, QD
     Route: 048
     Dates: start: 20241124

REACTIONS (1)
  - Death [Fatal]

NARRATIVE: CASE EVENT DATE: 20250221
